FAERS Safety Report 11324881 (Version 3)
Quarter: 2015Q4

REPORT INFORMATION
  Report Type: Spontaneous
  Country: JP (occurrence: JP)
  Receive Date: 20150730
  Receipt Date: 20151201
  Transmission Date: 20160304
  Serious: Yes (Death, Other)
  Sender: FDA-Public Use
  Company Number: JP-ELI_LILLY_AND_COMPANY-JP201506010909

PATIENT
  Age: 44 Year
  Sex: Male
  Weight: 57.4 kg

DRUGS (2)
  1. CYRAMZA [Suspect]
     Active Substance: RAMUCIRUMAB
     Indication: GASTRIC CANCER
     Dosage: 459.2 MG, OTHER
     Route: 042
     Dates: start: 20150626, end: 20150626
  2. CHLOR-TRIMETON ALLERGY SINUS [Concomitant]
     Indication: PREMEDICATION
     Dosage: UNK
     Dates: start: 20150626

REACTIONS (2)
  - Tumour haemorrhage [Recovering/Resolving]
  - Malignant ascites [Fatal]

NARRATIVE: CASE EVENT DATE: 20150629
